FAERS Safety Report 7593839-5 (Version None)
Quarter: 2011Q3

REPORT INFORMATION
  Report Type: 
  Country: None (occurrence: None)
  Receive Date: 20110706
  Receipt Date: 20110627
  Transmission Date: 20111222
  Serious: Yes (Hospitalization, Other)
  Sender: FDA-Public Use
  Company Number: PHHY2011US57089

PATIENT
  Sex: Male

DRUGS (1)
  1. GILENYA [Suspect]
     Indication: MULTIPLE SCLEROSIS
     Dosage: 0.5 MG, QD
     Route: 048
     Dates: start: 20110501, end: 20110628

REACTIONS (5)
  - RASH [None]
  - HEMIPLEGIA [None]
  - MULTIPLE SCLEROSIS RELAPSE [None]
  - URTICARIA [None]
  - HYPOAESTHESIA [None]
